FAERS Safety Report 22374493 (Version 2)
Quarter: 2023Q2

REPORT INFORMATION
  Report Type: Spontaneous
  Country: PL (occurrence: PL)
  Receive Date: 20230526
  Receipt Date: 20230605
  Transmission Date: 20230722
  Serious: Yes (Hospitalization)
  Sender: FDA-Public Use
  Company Number: PL-IPSEN Group, Research and Development-2016-03133

PATIENT
  Age: 12 Year
  Sex: Female
  Weight: 30 kg

DRUGS (14)
  1. SOMATROPIN [Suspect]
     Active Substance: SOMATROPIN
     Indication: Turner^s syndrome
     Dosage: 0.05 MG/KG, DAILY
     Route: 058
  2. SOMATROPIN [Suspect]
     Active Substance: SOMATROPIN
     Dosage: 0.04 MG/KG, 1X/DAY
     Route: 058
  3. SOMATROPIN [Suspect]
     Active Substance: SOMATROPIN
     Dosage: 0.04 MG/KG, 1X/DAY
     Route: 058
  4. SOMATROPIN [Suspect]
     Active Substance: SOMATROPIN
     Dosage: 0.045 MG/KG, DAILY
  5. SOMATROPIN [Suspect]
     Active Substance: SOMATROPIN
     Dosage: 0.045 MG/KG, DAILY
  6. SOMATROPIN [Suspect]
     Active Substance: SOMATROPIN
     Dosage: 0.033 MG/KG, DAILY (AFTER 5 WEEKS DOSE WAS REDUCED)
  7. ACTRAPID [Concomitant]
     Active Substance: INSULIN HUMAN
     Indication: Type 1 diabetes mellitus
     Dosage: 0.5U/KG, DAILY
  8. DYDROGESTERONE [Concomitant]
     Active Substance: DYDROGESTERONE
     Dosage: 5 MG
  9. ESTRADIOL [Concomitant]
     Active Substance: ESTRADIOL
     Dosage: (0.125 MG/DAY), THE DOSE WAS GRADUALLY INCREASED UNTIL IT REACHED A DOSE OF 1 MG/D
  10. ESTRADIOL [Concomitant]
     Active Substance: ESTRADIOL
     Dosage: 1 MG, DAILY
  11. LEVOTHYROXINE [Concomitant]
     Active Substance: LEVOTHYROXINE
     Indication: Blood thyroid stimulating hormone increased
     Dosage: UNK
  12. INSULIN HUMAN [Concomitant]
     Active Substance: INSULIN HUMAN
     Indication: Type 1 diabetes mellitus
     Dosage: 0.5U/KG, DAILY
  13. INSULIN ASPART [Concomitant]
     Active Substance: INSULIN ASPART
     Indication: Type 1 diabetes mellitus
     Dosage: 27 U, DAILY (APPROXIMATELY 0.8 U/KG/D)
  14. NOVORAPID [Concomitant]
     Active Substance: INSULIN ASPART
     Indication: Type 1 diabetes mellitus
     Dosage: 27 U, DAILY (APPROXIMATELY 0.8 U/KG/D)

REACTIONS (9)
  - Oesophagitis [Unknown]
  - Helicobacter infection [Unknown]
  - Therapeutic product effect decreased [Unknown]
  - Hypertension [Unknown]
  - Hyperglycaemia [Recovered/Resolved]
  - Ketonuria [Recovered/Resolved]
  - Educational problem [Unknown]
  - Emotional disorder [Unknown]
  - Increased appetite [Unknown]
